FAERS Safety Report 10151662 (Version 1)
Quarter: 2014Q2

REPORT INFORMATION
  Report Type: Report from Study
  Country: US (occurrence: US)
  Receive Date: 20140505
  Receipt Date: 20140505
  Transmission Date: 20141212
  Serious: Yes (Hospitalization)
  Sender: FDA-Public Use
  Company Number: US-ROCHE-1005668

PATIENT
  Age: 64 Year
  Sex: Female
  Weight: 63.6 kg

DRUGS (3)
  1. BEVACIZUMAB [Suspect]
     Indication: OVARIAN EPITHELIAL CANCER
     Dosage: OVER 30-90 MINUTES ON DAY 1 OF CYCLES 2+
     Route: 042
     Dates: start: 20110414
  2. PACLITAXEL [Suspect]
     Indication: OVARIAN EPITHELIAL CANCER
     Dosage: OVER 1 HR ON DAYS 1, 8 + 15 (CYCLES 1-6)
     Route: 042
     Dates: start: 20110414
  3. CARBOPLATIN [Suspect]
     Indication: OVARIAN EPITHELIAL CANCER
     Dosage: AUC = 6 IV ON DAY 1(CYCLES 1-6)
     Route: 042
     Dates: start: 20110414

REACTIONS (1)
  - Embolism [Recovering/Resolving]
